FAERS Safety Report 19821297 (Version 1)
Quarter: 2021Q3

REPORT INFORMATION
  Report Type: Spontaneous
  Country: US (occurrence: US)
  Receive Date: 20210913
  Receipt Date: 20210913
  Transmission Date: 20211014
  Serious: Yes (Hospitalization)
  Sender: FDA-Public Use
  Company Number: US-MYLANLABS-2021M1060213

PATIENT
  Age: 49 Year
  Sex: Male

DRUGS (1)
  1. TRIAMCINOLONE [Suspect]
     Active Substance: TRIAMCINOLONE
     Indication: IMMUNOSUPPRESSANT DRUG THERAPY
     Dosage: TRIAMCINOLONE INJECTION IN...

REACTIONS (4)
  - Eye infection syphilitic [Recovering/Resolving]
  - Syphilis [Recovering/Resolving]
  - Off label use [Unknown]
  - Condition aggravated [Recovering/Resolving]
